FAERS Safety Report 9659471 (Version 3)
Quarter: 2013Q4

REPORT INFORMATION
  Report Type: Spontaneous
  Country: DE (occurrence: DE)
  Receive Date: 20131031
  Receipt Date: 20131223
  Transmission Date: 20140711
  Serious: Yes (Hospitalization)
  Sender: FDA-Public Use
  Company Number: PHHY2013DE108096

PATIENT
  Sex: Female
  Weight: 56 kg

DRUGS (4)
  1. AFINITOR [Suspect]
     Indication: BREAST CANCER
     Dosage: 10 MG, DAY
     Route: 048
     Dates: start: 201302, end: 201303
  2. AFINITOR [Suspect]
     Dosage: 5 MG, DAILY
     Route: 048
     Dates: start: 201303, end: 201304
  3. OMEPRAZOL [Concomitant]
     Indication: DYSPEPSIA
     Dosage: 20 MG, DAY
     Route: 048
  4. CALCIMAGON D3 [Concomitant]

REACTIONS (2)
  - Oesophagitis [Recovered/Resolved]
  - Stomatitis [Recovered/Resolved]
